FAERS Safety Report 8517314 (Version 2)
Quarter: 2013Q1

REPORT INFORMATION
  Report Type: Spontaneous
  Country: US (occurrence: US)
  Receive Date: 20120417
  Receipt Date: 20130313
  Transmission Date: 20140127
  Serious: No
  Sender: FDA-Public Use
  Company Number: US-ELI_LILLY_AND_COMPANY-US201204003444

PATIENT
  Sex: Male

DRUGS (17)
  1. FORTEO [Suspect]
     Indication: OSTEOPOROSIS
     Dosage: UNK, QD
     Dates: start: 2006
  2. FORTEO [Suspect]
     Dosage: UNK UNK, QD
     Route: 065
  3. FORTEO [Suspect]
     Dosage: UNK UNK, QD
  4. FORTEO [Suspect]
     Dosage: UNK UNK, QD
  5. VITAMIN D NOS [Concomitant]
     Dosage: 50000 IU, UNK
  6. NIACIN [Concomitant]
     Dosage: 500 MG, BID
  7. MULTIVITAMIN [Concomitant]
     Dosage: UNK, QD
  8. MAGNESIUM [Concomitant]
     Dosage: 250 MG, QD
  9. FISH OIL [Concomitant]
     Dosage: 2000 MG, QD
  10. CALCITRATE [Concomitant]
     Dosage: 400 MG, QD
  11. PAIN RELIEVER [Concomitant]
     Dosage: 500 MG, PRN
  12. GABAPENTIN [Concomitant]
     Dosage: 1600 MG, QD
  13. SIMVASTATIN [Concomitant]
     Dosage: 40 MG, QD
  14. TRAMADOL [Concomitant]
  15. NABUMETONE [Concomitant]
     Dosage: 1000 MG, QD
  16. LISINOPRIL [Concomitant]
     Indication: BLOOD PRESSURE
     Dosage: 25 MG, UNK
  17. ASPIRIN [Concomitant]
     Dosage: 81 MG, UNK

REACTIONS (2)
  - Intervertebral disc degeneration [Unknown]
  - Overdose [Unknown]
